FAERS Safety Report 4858609-7 (Version None)
Quarter: 2005Q4

REPORT INFORMATION
  Report Type: 
  Country: None (occurrence: None)
  Receive Date: 20051219
  Receipt Date: 20051007
  Transmission Date: 20060501
  Serious: No
  Sender: FDA-Public Use
  Company Number: US-GLAXOSMITHKLINE-A0577506A

PATIENT
  Age: 50 Year
  Sex: Female

DRUGS (3)
  1. NICODERM CQ [Suspect]
     Dates: start: 20050924, end: 20051004
  2. NICODERM CQ [Suspect]
     Dates: start: 20050910, end: 20050924
  3. NICODERM CQ [Suspect]
     Dates: start: 20050827, end: 20050910

REACTIONS (2)
  - APPLICATION SITE PRURITUS [None]
  - APPLICATION SITE URTICARIA [None]
